FAERS Safety Report 4834435-X (Version None)
Quarter: 2005Q4

REPORT INFORMATION
  Report Type: 
  Country: None (occurrence: None)
  Receive Date: 20051122
  Receipt Date: 20051109
  Transmission Date: 20060501
  Serious: Yes (Other)
  Sender: FDA-Public Use
  Company Number: PHBS2005SE16458

PATIENT
  Age: 51 Year
  Sex: Female

DRUGS (6)
  1. ZOMETA [Suspect]
     Dosage: 4 MG
  2. ATENOLOL [Concomitant]
     Route: 065
  3. ARIMIDEX [Concomitant]
     Route: 065
  4. HERCEPTIN [Concomitant]
     Route: 065
  5. TAXOTERE [Concomitant]
     Route: 065
  6. INSULIN [Concomitant]
     Route: 065

REACTIONS (7)
  - BONE DISORDER [None]
  - FISTULA [None]
  - IMPAIRED HEALING [None]
  - OSTEONECROSIS [None]
  - SEQUESTRECTOMY [None]
  - SURGERY [None]
  - TOOTH EXTRACTION [None]
